FAERS Safety Report 16792307 (Version 2)
Quarter: 2019Q4

REPORT INFORMATION
  Report Type: Spontaneous
  Country: US (occurrence: US)
  Receive Date: 20190910
  Receipt Date: 20191003
  Transmission Date: 20200122
  Serious: Yes (Other)
  Sender: FDA-Public Use
  Company Number: US-TEVA-2019-US-1105371

PATIENT
  Age: 54 Year
  Sex: Male

DRUGS (3)
  1. SODIUM-CHLORIDE [Concomitant]
     Active Substance: SODIUM CHLORIDE
     Route: 042
  2. WARFARIN [Suspect]
     Active Substance: WARFARIN
     Indication: ANTICOAGULANT THERAPY
     Route: 065
  3. AQUAMEPHYTON [Suspect]
     Active Substance: PHYTONADIONE
     Indication: ANTICOAGULATION DRUG LEVEL ABOVE THERAPEUTIC
     Route: 042

REACTIONS (2)
  - Blood disorder [Unknown]
  - Epistaxis [Unknown]
